FAERS Safety Report 11054213 (Version 2)
Quarter: 2017Q4

REPORT INFORMATION
  Report Type: Report from Study
  Country: CN (occurrence: CN)
  Receive Date: 20150422
  Receipt Date: 20171226
  Transmission Date: 20180320
  Serious: Yes (Hospitalization)
  Sender: FDA-Public Use
  Company Number: CN-ROCHE-1566197

PATIENT
  Age: 46 Year
  Sex: Female
  Weight: 57 kg

DRUGS (12)
  1. FUROSEMIDE. [Concomitant]
     Active Substance: FUROSEMIDE
     Route: 065
     Dates: start: 20150119, end: 20150123
  2. SPIRONOLACTONE. [Concomitant]
     Active Substance: SPIRONOLACTONE
     Route: 065
     Dates: start: 20150119, end: 20150123
  3. MANNATIDE [Concomitant]
     Route: 065
     Dates: start: 20150120, end: 20150121
  4. BEVACIZUMAB. [Suspect]
     Active Substance: BEVACIZUMAB
     Indication: COLORECTAL CANCER METASTATIC
     Dosage: DATE OF LAST DOSE PRIOR TO SAE: 08/JAN/2015?TEMPORARILY STOPPED: 01/FEB/2015?RESTARTED : 22/FEB/2015
     Route: 042
     Dates: start: 20150108
  5. METHYLPREDNISOLONE SODIUM SUCCINATE. [Concomitant]
     Active Substance: METHYLPREDNISOLONE SODIUM SUCCINATE
     Route: 065
     Dates: start: 20150117, end: 20150118
  6. IRINOTECAN [Suspect]
     Active Substance: IRINOTECAN
     Indication: PRODUCT USED FOR UNKNOWN INDICATION
     Route: 065
  7. POTASSIUM CHLORIDE. [Concomitant]
     Active Substance: POTASSIUM CHLORIDE
     Route: 065
     Dates: start: 20150117, end: 20150119
  8. ADENOSINE PHOSPHATE [Concomitant]
     Active Substance: ADENOSINE PHOSPHATE
     Route: 065
     Dates: start: 20150117, end: 20150118
  9. RECOMBINANT HUMAN INTERLEUKIN-2 [Concomitant]
     Active Substance: ALDESLEUKIN
     Route: 065
     Dates: start: 20150117, end: 20150121
  10. NACL [Concomitant]
     Active Substance: SODIUM CHLORIDE
     Route: 065
     Dates: start: 20150116, end: 20150118
  11. LANSOPRAZOLE. [Concomitant]
     Active Substance: LANSOPRAZOLE
     Route: 065
     Dates: start: 20150117, end: 20150119
  12. LEVOFLOXACIN HYDROCHLORIDE [Concomitant]
     Active Substance: LEVOFLOXACIN HYDROCHLORIDE
     Route: 065
     Dates: start: 20150120, end: 20150121

REACTIONS (1)
  - Enteritis [Recovered/Resolved]

NARRATIVE: CASE EVENT DATE: 20150116
